FAERS Safety Report 7959747-2 (Version None)
Quarter: 2011Q4

REPORT INFORMATION
  Report Type: 
  Country: None (occurrence: None)
  Receive Date: 20111206
  Receipt Date: 20111130
  Transmission Date: 20120403
  Serious: Yes (Other)
  Sender: FDA-Public Use
  Company Number: CN-GLAXOSMITHKLINE-B0761674A

PATIENT
  Age: 31 Year
  Sex: Male

DRUGS (2)
  1. PAROXETINE HCL [Suspect]
     Indication: OBSESSIVE-COMPULSIVE DISORDER
     Dosage: 60MG PER DAY
     Route: 048
     Dates: start: 20110801
  2. ARIPIPRAZOLE [Concomitant]
     Indication: OBSESSIVE-COMPULSIVE DISORDER
     Dosage: 15MG PER DAY
     Route: 048
     Dates: start: 20110801

REACTIONS (3)
  - ABASIA [None]
  - MUSCULOSKELETAL STIFFNESS [None]
  - HALLUCINATION [None]
